FAERS Safety Report 6966119-6 (Version None)
Quarter: 2010Q3

REPORT INFORMATION
  Report Type: 
  Country: None (occurrence: None)
  Receive Date: 20100903
  Receipt Date: 20100825
  Transmission Date: 20110219
  Serious: Yes (Other)
  Sender: FDA-Public Use
  Company Number: PHHY2010US56387

PATIENT
  Sex: Female

DRUGS (4)
  1. EXTAVIA [Suspect]
     Indication: MULTIPLE SCLEROSIS
     Dosage: 0.125 MG, QOD
     Route: 058
     Dates: start: 20100804
  2. EXTAVIA [Suspect]
     Dosage: 0.5 ML QOD
     Route: 058
  3. METOPROLOL TARTRATE [Concomitant]
     Dosage: 50 MG, QD
  4. NORVASC [Concomitant]
     Dosage: 10 MG, QD

REACTIONS (3)
  - DISTURBANCE IN ATTENTION [None]
  - FATIGUE [None]
  - LOSS OF CONSCIOUSNESS [None]
